FAERS Safety Report 19964365 (Version 1)
Quarter: 2021Q4

REPORT INFORMATION
  Report Type: Spontaneous
  Country: US (occurrence: US)
  Receive Date: 20211018
  Receipt Date: 20211018
  Transmission Date: 20220303
  Serious: Yes (Hospitalization)
  Sender: FDA-Public Use
  Company Number: None

PATIENT
  Age: 78 Year
  Sex: Female
  Weight: 81.6 kg

DRUGS (1)
  1. RIVAROXABAN [Suspect]
     Active Substance: RIVAROXABAN
     Indication: Deep vein thrombosis
     Route: 048
     Dates: start: 20210414, end: 20210817

REACTIONS (5)
  - Dyspnoea exertional [None]
  - Anaemia [None]
  - Gastric ulcer [None]
  - Acute kidney injury [None]
  - Arteriovenous malformation [None]

NARRATIVE: CASE EVENT DATE: 20210817
